FAERS Safety Report 10348053 (Version 1)
Quarter: 2014Q3

REPORT INFORMATION
  Report Type: Spontaneous
  Country: NL (occurrence: NL)
  Receive Date: 20140729
  Receipt Date: 20140729
  Transmission Date: 20150326
  Serious: Yes (Other)
  Sender: FDA-Public Use
  Company Number: NL-ACTAVIS-2014-16208

PATIENT
  Age: 39 Year
  Sex: Male

DRUGS (1)
  1. DOXYCYCLINE MONOHYDRATE (UNKNOWN) [Suspect]
     Active Substance: DOXYCYCLINE
     Indication: LYMPHOGRANULOMA VENEREUM
     Dosage: 100 MG, BID
     Route: 065

REACTIONS (2)
  - Drug effect delayed [Recovered/Resolved]
  - Drug ineffective [Recovered/Resolved]
